FAERS Safety Report 13100608 (Version 2)
Quarter: 2017Q1

REPORT INFORMATION
  Report Type: Spontaneous
  Country: US (occurrence: US)
  Receive Date: 20170110
  Receipt Date: 20170113
  Transmission Date: 20170428
  Serious: Yes (Death, Other)
  Sender: FDA-Public Use
  Company Number: US-009507513-1701USA003657

PATIENT
  Sex: Male

DRUGS (2)
  1. EMEND [Suspect]
     Active Substance: APREPITANT
     Dosage: UNK
     Route: 048
     Dates: start: 20161209
  2. EMEND [Suspect]
     Active Substance: APREPITANT
     Dosage: UNK
     Dates: start: 20161209

REACTIONS (2)
  - Headache [Unknown]
  - Cerebral haemorrhage [Fatal]
